FAERS Safety Report 4884846-1 (Version None)
Quarter: 2006Q1

REPORT INFORMATION
  Report Type: 
  Country: None (occurrence: None)
  Receive Date: 20060119
  Receipt Date: 20060116
  Transmission Date: 20060701
  Serious: Yes (Hospitalization)
  Sender: FDA-Public Use
  Company Number: US-GLAXOSMITHKLINE-A0589740A

PATIENT
  Age: 77 Year
  Sex: Female
  Weight: 66 kg

DRUGS (7)
  1. FONDAPARINUX SODIUM [Suspect]
     Indication: ACUTE MYOCARDIAL INFARCTION
     Dosage: 2.5MG PER DAY
     Route: 058
     Dates: start: 20040223, end: 20040224
  2. ASPIRIN [Concomitant]
  3. EPTIFIBATIDE [Concomitant]
  4. ATORVASTATIN [Concomitant]
  5. FUROSEMIDE [Concomitant]
  6. VALSARTAN [Concomitant]
  7. PAROXETINE HYDROCHLORIDE [Concomitant]

REACTIONS (16)
  - BACK PAIN [None]
  - BACTERAEMIA [None]
  - CHILLS [None]
  - COAGULOPATHY [None]
  - ESCHERICHIA INFECTION [None]
  - FLANK PAIN [None]
  - INJECTION SITE HAEMORRHAGE [None]
  - LEUKOCYTOSIS [None]
  - NAUSEA [None]
  - PERICARDIAL HAEMORRHAGE [None]
  - PLATELET COUNT DECREASED [None]
  - POST PROCEDURAL DRAINAGE [None]
  - POST PROCEDURAL HAEMORRHAGE [None]
  - PYELONEPHRITIS ACUTE [None]
  - PYREXIA [None]
  - URINARY TRACT INFECTION [None]
